FAERS Safety Report 8287396-8 (Version None)
Quarter: 2012Q2

REPORT INFORMATION
  Report Type: 
  Country: None (occurrence: None)
  Receive Date: 20120416
  Receipt Date: 20120410
  Transmission Date: 20120825
  Serious: Yes (Other)
  Sender: FDA-Public Use
  Company Number: US-PFIZER INC-2012091116

PATIENT
  Sex: Female

DRUGS (2)
  1. GEODON [Suspect]
     Dosage: 80, UNK 2 DAILY
  2. GEODON [Suspect]
     Indication: SCHIZOPHRENIA
     Dosage: 80 MG, 4 AT A TIME

REACTIONS (6)
  - DEPRESSION [None]
  - TACHYPHRENIA [None]
  - SCHIZOPHRENIA [None]
  - PARANOIA [None]
  - OBSESSIVE-COMPULSIVE DISORDER [None]
  - THINKING ABNORMAL [None]
